FAERS Safety Report 6148847-8 (Version None)
Quarter: 2009Q2

REPORT INFORMATION
  Report Type: 
  Country: None (occurrence: None)
  Receive Date: 20090408
  Receipt Date: 20090406
  Transmission Date: 20091009
  Serious: Yes (Death, Hospitalization)
  Sender: FDA-Public Use
  Company Number: US-MERCK-0810USA05268

PATIENT
  Age: 54 Year
  Sex: Female
  Weight: 98 kg

DRUGS (10)
  1. IVEMEND [Suspect]
     Indication: PROPHYLAXIS OF NAUSEA AND VOMITING
     Route: 041
     Dates: start: 20081022, end: 20081022
  2. EMEND [Suspect]
     Indication: PROPHYLAXIS OF NAUSEA AND VOMITING
     Route: 048
     Dates: start: 20081023, end: 20081023
  3. ANTINEOPLASTIC (UNSPECIFIED) [Concomitant]
     Route: 065
     Dates: start: 20081022
  4. RITUXAN [Concomitant]
     Indication: NEOPLASM MALIGNANT
     Route: 042
     Dates: start: 20071101, end: 20081022
  5. RITUXAN [Concomitant]
     Route: 042
     Dates: start: 20071101, end: 20081022
  6. RITUXAN [Concomitant]
     Route: 042
     Dates: start: 20071101, end: 20081022
  7. DECADRON [Suspect]
     Indication: NEOPLASM MALIGNANT
     Route: 048
     Dates: start: 20080401, end: 20081001
  8. BACTRIM [Concomitant]
     Route: 048
     Dates: start: 20080401, end: 20081001
  9. VALTREX [Concomitant]
     Indication: PROPHYLAXIS
     Route: 048
     Dates: start: 20080901, end: 20081001
  10. PREDNISONE [Concomitant]
     Indication: NEOPLASM MALIGNANT
     Route: 048
     Dates: start: 20080901, end: 20081001

REACTIONS (5)
  - LOCAL SWELLING [None]
  - NEOPLASM MALIGNANT [None]
  - PRURITUS [None]
  - SWELLING FACE [None]
  - THROAT TIGHTNESS [None]
